FAERS Safety Report 23628038 (Version 1)
Quarter: 2024Q1

REPORT INFORMATION
  Report Type: Spontaneous
  Country: US (occurrence: None)
  Receive Date: 20240313
  Receipt Date: 20240313
  Transmission Date: 20240410
  Serious: Yes (Other)
  Sender: FDA-Public Use
  Company Number: US-ROCHE-3521019

PATIENT
  Sex: Male

DRUGS (4)
  1. ACTEMRA [Suspect]
     Active Substance: TOCILIZUMAB
     Indication: Vasculitis
     Route: 042
  2. METOPROLOL [Concomitant]
     Active Substance: METOPROLOL
  3. LISINOPRIL [Concomitant]
     Active Substance: LISINOPRIL
  4. PREDNISONE [Concomitant]
     Active Substance: PREDNISONE

REACTIONS (23)
  - Atrial fibrillation [Unknown]
  - Fatigue [Unknown]
  - Lower respiratory tract infection [Unknown]
  - Pain [Unknown]
  - Nerve injury [Unknown]
  - Arthropathy [Unknown]
  - Immunosuppression [Unknown]
  - Upper respiratory tract infection [Unknown]
  - Cough [Unknown]
  - Sneezing [Unknown]
  - Pyrexia [Unknown]
  - Dizziness [Unknown]
  - Paraesthesia [Unknown]
  - Malaise [Unknown]
  - Vasculitis [Unknown]
  - Dyspnoea [Unknown]
  - Hypoaesthesia [Unknown]
  - COVID-19 [Unknown]
  - Inflammation [Unknown]
  - Vertigo [Unknown]
  - Ill-defined disorder [Unknown]
  - Arthralgia [Unknown]
  - Off label use [Unknown]

NARRATIVE: CASE EVENT DATE: 20201201
